FAERS Safety Report 25666544 (Version 1)
Quarter: 2025Q3

REPORT INFORMATION
  Report Type: Spontaneous
  Country: US (occurrence: US)
  Receive Date: 20250811
  Receipt Date: 20250811
  Transmission Date: 20251020
  Serious: No
  Sender: SANOFI AVENTIS
  Company Number: US-SA-2025SA233149

PATIENT
  Sex: Male
  Weight: 15.45 kg

DRUGS (1)
  1. DUPIXENT [Suspect]
     Active Substance: DUPILUMAB
     Dosage: 300 MG Q4W
     Route: 058

REACTIONS (6)
  - Skin lesion [Unknown]
  - Dry skin [Unknown]
  - Scratch [Unknown]
  - Skin discolouration [Unknown]
  - Scar [Unknown]
  - Pruritus [Unknown]
